FAERS Safety Report 4842521-3 (Version None)
Quarter: 2005Q4

REPORT INFORMATION
  Report Type: 
  Country: None (occurrence: None)
  Receive Date: 20051129
  Receipt Date: 20051116
  Transmission Date: 20060501
  Serious: Yes (Life-Threatening, Other)
  Sender: FDA-Public Use
  Company Number: USA0506100870

PATIENT
  Age: 51 Year
  Sex: Male

DRUGS (4)
  1. CIALIS [Suspect]
     Indication: ERECTILE DYSFUNCTION
     Dosage: SEE IMAGE
     Route: 048
     Dates: start: 20030101, end: 20050101
  2. NOVOLIN NPH (INSULIN HUMAN INJECTION, ISOPHANE) [Concomitant]
  3. ALTACE [Concomitant]
  4. ASPIRIN [Concomitant]

REACTIONS (8)
  - AMNESIA [None]
  - BLOOD GLUCOSE INCREASED [None]
  - CHROMATOPSIA [None]
  - CONVULSION [None]
  - FATIGUE [None]
  - LOSS OF CONSCIOUSNESS [None]
  - NECK PAIN [None]
  - SHOULDER PAIN [None]
